FAERS Safety Report 17110490 (Version 34)
Quarter: 2025Q2

REPORT INFORMATION
  Report Type: Spontaneous
  Country: US (occurrence: US)
  Receive Date: 20191204
  Receipt Date: 20250616
  Transmission Date: 20250717
  Serious: Yes (Hospitalization, Other)
  Sender: PFIZER
  Company Number: US-PFIZER INC-2018475209

PATIENT
  Age: 56 Year
  Sex: Female
  Weight: 92 kg

DRUGS (27)
  1. XELJANZ [Suspect]
     Active Substance: TOFACITINIB CITRATE
     Indication: Rheumatoid arthritis
     Dosage: 10 MG, 2X/DAY (BID)
     Route: 048
     Dates: start: 20091228, end: 2019
  2. XELJANZ [Suspect]
     Active Substance: TOFACITINIB CITRATE
     Indication: Pain
     Dosage: 15 MG, DAILY (10 MG AM, 5 MG PM DAILY)
     Route: 048
     Dates: start: 20191229
  3. XELJANZ [Suspect]
     Active Substance: TOFACITINIB CITRATE
     Route: 048
  4. XELJANZ [Suspect]
     Active Substance: TOFACITINIB CITRATE
     Dosage: 5 MG, DAILY
     Route: 048
  5. XELJANZ [Suspect]
     Active Substance: TOFACITINIB CITRATE
     Dosage: 10 MG, DAILY
     Route: 048
  6. XELJANZ [Suspect]
     Active Substance: TOFACITINIB CITRATE
     Dosage: 15 MG, DAILY (5 MG IN AM AND 10 MG IN PM)
     Route: 048
  7. XELJANZ [Suspect]
     Active Substance: TOFACITINIB CITRATE
     Dosage: 15 MG, DAILY (10 MG IN AM AND 5 MG IN PM)
     Route: 048
  8. XELJANZ [Suspect]
     Active Substance: TOFACITINIB CITRATE
     Dosage: 5 MG, 2X/DAY (BID)
     Route: 048
  9. XELJANZ [Suspect]
     Active Substance: TOFACITINIB CITRATE
     Dosage: 10 MG, 2X/DAY (BID)
     Route: 048
  10. XELJANZ [Suspect]
     Active Substance: TOFACITINIB CITRATE
     Dosage: 15 MG, DAILY (ONE TABLET 5 MG IN THE MORNING AND 10 IN THE EVENING)
     Route: 048
  11. ALDACTONE [Concomitant]
     Active Substance: SPIRONOLACTONE
  12. ASPIRIN [Concomitant]
     Active Substance: ASPIRIN
  13. CALCIUM [Concomitant]
     Active Substance: CALCIUM
  14. CALCIUM\CHOLECALCIFEROL [Concomitant]
     Active Substance: CALCIUM\CHOLECALCIFEROL
  15. GLUCOSAMINE [Concomitant]
     Active Substance: GLUCOSAMINE
  16. TEA LEAF [Concomitant]
     Active Substance: TEA LEAF
     Dates: start: 201907
  17. LIPITOR [Concomitant]
     Active Substance: ATORVASTATIN CALCIUM
  18. METOPROLOL [Concomitant]
     Active Substance: METOPROLOL
  19. SULFAMETHOXAZOLE\TRIMETHOPRIM [Concomitant]
     Active Substance: SULFAMETHOXAZOLE\TRIMETHOPRIM
  20. PANTOPRAZOLE [Concomitant]
     Active Substance: PANTOPRAZOLE
  21. PREDNISONE [Concomitant]
     Active Substance: PREDNISONE
  22. SPIRONOLACTONE [Concomitant]
     Active Substance: SPIRONOLACTONE
     Dates: start: 201606
  23. SPIRONOLACTONE [Concomitant]
     Active Substance: SPIRONOLACTONE
     Dates: start: 201803
  24. HERBALS\TURMERIC [Concomitant]
     Active Substance: HERBALS\TURMERIC
     Dates: start: 201910
  25. VITAMIN B12 [Concomitant]
     Active Substance: CYANOCOBALAMIN
  26. VITAMIN C [Concomitant]
     Active Substance: ASCORBIC ACID
  27. CHOLECALCIFEROL [Concomitant]
     Active Substance: CHOLECALCIFEROL

REACTIONS (4)
  - COVID-19 [Unknown]
  - Weight decreased [Recovered/Resolved]
  - Drug hypersensitivity [Unknown]
  - Off label use [Unknown]

NARRATIVE: CASE EVENT DATE: 20091228
